FAERS Safety Report 24740734 (Version 1)
Quarter: 2024Q4

REPORT INFORMATION
  Report Type: Spontaneous
  Country: US (occurrence: US)
  Receive Date: 20241217
  Receipt Date: 20241217
  Transmission Date: 20250114
  Serious: Yes (Hospitalization, Other)
  Sender: NOVO NORDISK
  Company Number: US-NOVOPROD-1334543

PATIENT
  Age: 44 Year
  Sex: Female

DRUGS (4)
  1. SAXENDA [Suspect]
     Active Substance: LIRAGLUTIDE
     Indication: Glucose tolerance impaired
     Dosage: UNK
     Route: 058
  2. SAXENDA [Suspect]
     Active Substance: LIRAGLUTIDE
     Indication: Blood pressure abnormal
  3. SAXENDA [Suspect]
     Active Substance: LIRAGLUTIDE
     Indication: Weight control
  4. SAXENDA [Suspect]
     Active Substance: LIRAGLUTIDE
     Indication: Idiopathic intracranial hypertension

REACTIONS (4)
  - Hysterectomy [Recovered/Resolved]
  - Abdominal operation [Unknown]
  - Scar [Unknown]
  - Weight increased [Unknown]

NARRATIVE: CASE EVENT DATE: 20230210
